FAERS Safety Report 8539256-2 (Version None)
Quarter: 2012Q3

REPORT INFORMATION
  Report Type: 
  Country: None (occurrence: None)
  Receive Date: 20120726
  Receipt Date: 20120719
  Transmission Date: 20120928
  Serious: Yes (Hospitalization, Other)
  Sender: FDA-Public Use
  Company Number: JP-VERTEX PHARMACEUTICALS INC.-AE-2012-009244

PATIENT
  Age: 67 Year
  Sex: Female

DRUGS (18)
  1. TELAVIC (TELAPREVIR) [Suspect]
     Indication: HEPATITIS C
     Route: 048
     Dates: start: 20120502, end: 20120606
  2. REBETOL [Concomitant]
     Indication: HEPATITIS C
     Route: 048
     Dates: start: 20120502, end: 20120524
  3. REBETOL [Concomitant]
     Route: 048
     Dates: start: 20120606, end: 20120615
  4. VOLTAREN-XR [Concomitant]
     Route: 048
     Dates: start: 20120501
  5. MENTAX [Concomitant]
     Route: 061
     Dates: start: 20120503
  6. URSO 250 [Concomitant]
     Route: 048
  7. TELAVIC (TELAPREVIR) [Suspect]
     Route: 048
     Dates: start: 20120606, end: 20120615
  8. PEGINTERFERON ALFA-2B [Concomitant]
     Route: 058
     Dates: start: 20120523, end: 20120613
  9. DETOMEFAN [Concomitant]
     Route: 048
     Dates: start: 20120503, end: 20120510
  10. MARZULENE-S [Concomitant]
     Route: 048
     Dates: start: 20120501
  11. PEGINTERFERON ALFA-2B [Concomitant]
     Route: 058
     Dates: start: 20120516, end: 20120516
  12. JUVELA N [Concomitant]
     Route: 048
  13. GLAKAY [Concomitant]
     Route: 048
  14. MENTAX [Concomitant]
     Route: 061
     Dates: start: 20120503
  15. REBETOL [Concomitant]
     Route: 048
     Dates: start: 20120525, end: 20120606
  16. PEGINTERFERON ALFA-2B [Concomitant]
     Route: 058
     Dates: start: 20120502, end: 20120509
  17. TALION OD [Concomitant]
     Route: 048
  18. HUSCODE [Concomitant]
     Route: 048
     Dates: start: 20120503, end: 20120503

REACTIONS (2)
  - SKIN DISORDER [None]
  - HAEMOGLOBIN DECREASED [None]
